FAERS Safety Report 5469539-4 (Version None)
Quarter: 2007Q3

REPORT INFORMATION
  Report Type: 
  Country: None (occurrence: None)
  Receive Date: 20070925
  Receipt Date: 20070925
  Transmission Date: 20080115
  Serious: Yes (Other)
  Sender: FDA-Public Use
  Company Number: None

PATIENT
  Age: 65 Year
  Sex: Female
  Weight: 100.6985 kg

DRUGS (2)
  1. LIP MEDEX NO STRENGTH BLISTEX [Suspect]
     Indication: LIP DRY
     Dosage: JUST RUB ON LIPS THREE TIMES A DAY TOP
     Route: 061
     Dates: start: 20070820, end: 20070831
  2. MEDICATED LIP BALM NO STRENGTH BLISTEX [Suspect]
     Indication: LIP DRY
     Dosage: JUST RUB ON LIPS NO RESTRICTIONS TOP
     Route: 061
     Dates: start: 20070922, end: 20070922

REACTIONS (1)
  - EXTRASYSTOLES [None]
